FAERS Safety Report 6343322-X (Version None)
Quarter: 2009Q3

REPORT INFORMATION
  Report Type: 
  Country: None (occurrence: None)
  Receive Date: 20090908
  Receipt Date: 20090828
  Transmission Date: 20100115
  Serious: Yes (Other)
  Sender: FDA-Public Use
  Company Number: PHEH2009US10081

PATIENT
  Sex: Female

DRUGS (1)
  1. TEGRETOL-XR [Suspect]
     Dosage: 100 MG, UNK
     Dates: start: 19990101

REACTIONS (4)
  - CONVULSION [None]
  - FATIGUE [None]
  - HEADACHE [None]
  - PRODUCT TASTE ABNORMAL [None]
